FAERS Safety Report 18624387 (Version 1)
Quarter: 2020Q4

REPORT INFORMATION
  Report Type: Spontaneous
  Country: US (occurrence: US)
  Receive Date: 20201216
  Receipt Date: 20201216
  Transmission Date: 20210114
  Serious: Yes (Other)
  Sender: FDA-Public Use
  Company Number: US-PURDUE-USA-2020-0158350

PATIENT

DRUGS (1)
  1. OXYCONTIN [Suspect]
     Active Substance: OXYCODONE HYDROCHLORIDE
     Indication: PRODUCT USED FOR UNKNOWN INDICATION
     Dosage: UNK
     Route: 048

REACTIONS (9)
  - Hypopnoea [Unknown]
  - Gastric ulcer [Unknown]
  - Respiratory rate decreased [Unknown]
  - Constipation [Unknown]
  - Dry mouth [Unknown]
  - Depressed level of consciousness [Unknown]
  - Dry eye [Unknown]
  - Nausea [Unknown]
  - Abdominal discomfort [Unknown]
